FAERS Safety Report 17194809 (Version 5)
Quarter: 2020Q1

REPORT INFORMATION
  Report Type: Report from Study
  Country: US (occurrence: US)
  Receive Date: 20191224
  Receipt Date: 20200309
  Transmission Date: 20200409
  Serious: Yes (Hospitalization, Other)
  Sender: FDA-Public Use
  Company Number: US-BRISTOL-MYERS SQUIBB COMPANY-BMS-2019-121214

PATIENT
  Age: 58 Year
  Sex: Male
  Weight: 61.2 kg

DRUGS (2)
  1. CISPLATIN. [Suspect]
     Active Substance: CISPLATIN
     Indication: HEAD AND NECK CANCER
     Dosage: 184 MILLIGRAM, Q3WK
     Route: 042
     Dates: start: 20191202
  2. NIVOLUMAB [Suspect]
     Active Substance: NIVOLUMAB
     Indication: HEAD AND NECK CANCER
     Dosage: 100 MILLIGRAM/SQ. METER, QWK
     Route: 042
     Dates: start: 20190925, end: 20191106

REACTIONS (7)
  - Pain [Unknown]
  - Nausea [Recovering/Resolving]
  - Vomiting [Recovering/Resolving]
  - Diarrhoea [Unknown]
  - Febrile neutropenia [Recovered/Resolved]
  - Hypophagia [Unknown]
  - Failure to thrive [Unknown]

NARRATIVE: CASE EVENT DATE: 20191215
